FAERS Safety Report 23889157 (Version 1)
Quarter: 2024Q2

REPORT INFORMATION
  Report Type: Spontaneous
  Country: US (occurrence: US)
  Receive Date: 20240523
  Receipt Date: 20240523
  Transmission Date: 20240716
  Serious: No
  Sender: FDA-Public Use
  Company Number: US-TARO PHARMACEUTICALS USA INC.-2023TAR00686

PATIENT

DRUGS (1)
  1. TERCONAZOLE [Suspect]
     Active Substance: TERCONAZOLE
     Indication: Vulvovaginal mycotic infection
     Dosage: 1 APPLICATORFUL, OD, 1X PER DAY AT BEDTIME FOR 3 DAYS CONSECUTIVELY
     Route: 067

REACTIONS (3)
  - Disease recurrence [Unknown]
  - Application site injury [Not Recovered/Not Resolved]
  - Product container issue [Unknown]
